FAERS Safety Report 5819576-2 (Version None)
Quarter: 2008Q3

REPORT INFORMATION
  Report Type: 
  Country: None (occurrence: None)
  Receive Date: 20080717
  Receipt Date: 20080701
  Transmission Date: 20090109
  Serious: Yes (Hospitalization)
  Sender: FDA-Public Use
  Company Number: 20080773

PATIENT
  Age: 15 Year
  Sex: Male
  Weight: 42 kg

DRUGS (8)
  1. OMEPRAZOLE [Suspect]
     Indication: ABDOMINAL PAIN UPPER
     Dosage: 20 MG, ORAL
     Route: 048
  2. PREDNISONE [Concomitant]
  3. DEXAMETHASONE [Concomitant]
  4. CYCLOPHOSPHAMIDE [Concomitant]
  5. VINCRISTINE [Concomitant]
  6. DAUNORUBICIN HCL [Concomitant]
  7. TRIPLE INTRATHECAL CHEMOTHERAPY [Concomitant]
  8. ELSPAR [Concomitant]

REACTIONS (4)
  - BLOOD LACTATE DEHYDROGENASE INCREASED [None]
  - DRUG INTERACTION [None]
  - DRUG TOXICITY [None]
  - MUCOSAL INFLAMMATION [None]
